FAERS Safety Report 10678318 (Version 1)
Quarter: 2014Q4

REPORT INFORMATION
  Report Type: Spontaneous
  Country: US (occurrence: None)
  Receive Date: 20141224
  Receipt Date: 20141224
  Transmission Date: 20150529
  Serious: No
  Sender: FDA-Public Use
  Company Number: None

PATIENT
  Age: 68 Year
  Sex: Female
  Weight: 70.31 kg

DRUGS (2)
  1. DULOXETINE [Suspect]
     Active Substance: DULOXETINE
     Indication: PAIN
     Dosage: 1 PILL, ONCE DAILY
     Route: 048
     Dates: start: 20110608, end: 20141006
  2. DULOXETINE [Suspect]
     Active Substance: DULOXETINE
     Indication: DEPRESSION
     Dosage: 1 PILL, ONCE DAILY
     Route: 048
     Dates: start: 20110608, end: 20141006

REACTIONS (8)
  - Disturbance in attention [None]
  - Feeling abnormal [None]
  - Activities of daily living impaired [None]
  - Drug withdrawal syndrome [None]
  - Headache [None]
  - Thinking abnormal [None]
  - Malaise [None]
  - Nausea [None]

NARRATIVE: CASE EVENT DATE: 20141106
